FAERS Safety Report 5085668-1 (Version None)
Quarter: 2006Q3

REPORT INFORMATION
  Report Type: 
  Country: None (occurrence: None)
  Receive Date: 20060822
  Receipt Date: 20051221
  Transmission Date: 20061208
  Serious: Yes (Other)
  Sender: FDA-Public Use
  Company Number: US-ROCHE-439612

PATIENT
  Age: 16 Year
  Sex: Female
  Weight: 59 kg

DRUGS (4)
  1. ACCUTANE [Suspect]
     Indication: ACNE
     Dosage: ALTERNATING 40/80MG PER DAY
     Route: 048
     Dates: start: 19941216, end: 19950502
  2. ACCUTANE [Suspect]
     Dosage: ALTERNATING 40/80MG PER DAY
     Route: 048
     Dates: start: 19960726, end: 19961127
  3. ACCUTANE [Suspect]
     Route: 048
     Dates: start: 19971129, end: 19980215
  4. ORTHO TRI-CYCLEN [Concomitant]
     Route: 048

REACTIONS (97)
  - ABDOMINAL DISTENSION [None]
  - ABDOMINAL PAIN [None]
  - ABORTION THREATENED [None]
  - ALANINE AMINOTRANSFERASE INCREASED [None]
  - ALOPECIA [None]
  - ALPHA 1 FOETOPROTEIN INCREASED [None]
  - ANION GAP DECREASED [None]
  - ARTHRALGIA [None]
  - ASTHENIA [None]
  - AUTOIMMUNE DISORDER [None]
  - BLOOD ALKALINE PHOSPHATASE INCREASED [None]
  - BLOOD CREATININE DECREASED [None]
  - BODY TEMPERATURE INCREASED [None]
  - BOWEL MOVEMENT IRREGULARITY [None]
  - BREAST DISCOMFORT [None]
  - BULIMIA NERVOSA [None]
  - CARDIAC DISORDER [None]
  - CHEST PAIN [None]
  - CHRONIC FATIGUE SYNDROME [None]
  - COLITIS ULCERATIVE [None]
  - CONSTIPATION [None]
  - CONVULSION [None]
  - COUGH [None]
  - CYSTITIS INTERSTITIAL [None]
  - DEPRESSION [None]
  - DERMATITIS CONTACT [None]
  - DIARRHOEA [None]
  - DIVORCED [None]
  - DIZZINESS [None]
  - DRUG EXPOSURE DURING PREGNANCY [None]
  - DRUG EXPOSURE VIA BREAST MILK [None]
  - DRUG HYPERSENSITIVITY [None]
  - DYSKINESIA [None]
  - DYSPNOEA [None]
  - ELECTROCARDIOGRAM QT PROLONGED [None]
  - ELECTROCARDIOGRAM T WAVE INVERSION [None]
  - EXTRASYSTOLES [None]
  - FATIGUE [None]
  - FIBROMYALGIA [None]
  - FLATULENCE [None]
  - FOETAL MOVEMENTS DECREASED [None]
  - HAEMATOCHEZIA [None]
  - HAEMATOCRIT DECREASED [None]
  - HAEMOGLOBIN DECREASED [None]
  - HAEMORRHOIDS [None]
  - HEADACHE [None]
  - HEPATITIS B ANTIBODY POSITIVE [None]
  - HIGH RISK SEXUAL BEHAVIOUR [None]
  - HYPOACUSIS [None]
  - INFLAMMATORY BOWEL DISEASE [None]
  - INSOMNIA [None]
  - INTESTINAL OBSTRUCTION [None]
  - IRON DEFICIENCY ANAEMIA [None]
  - LONG QT SYNDROME [None]
  - MELANOCYTIC NAEVUS [None]
  - MUSCLE SPASMS [None]
  - MUSCULOSKELETAL DISCOMFORT [None]
  - MYALGIA [None]
  - NAUSEA [None]
  - NECK INJURY [None]
  - NEUROPATHY [None]
  - PAIN [None]
  - PALPITATIONS [None]
  - PARTNER STRESS [None]
  - PHOTOPHOBIA [None]
  - POLYCYSTIC OVARIES [None]
  - POSTNASAL DRIP [None]
  - POSTPARTUM DEPRESSION [None]
  - PREGNANCY [None]
  - PROCTALGIA [None]
  - PROCTITIS [None]
  - PSEUDOPOLYP [None]
  - RECTAL HAEMORRHAGE [None]
  - RECTAL ULCER [None]
  - RED BLOOD CELL COUNT INCREASED [None]
  - RESTLESS LEGS SYNDROME [None]
  - RESTLESSNESS [None]
  - RUBELLA IN PREGNANCY [None]
  - SEASONAL ALLERGY [None]
  - SINUS ARRHYTHMIA [None]
  - SINUS HEADACHE [None]
  - SINUS TACHYCARDIA [None]
  - SKIN PAPILLOMA [None]
  - SUICIDAL IDEATION [None]
  - SUPRAVENTRICULAR EXTRASYSTOLES [None]
  - SYSTEMIC LUPUS ERYTHEMATOSUS [None]
  - THERAPY NON-RESPONDER [None]
  - THROMBOSIS [None]
  - UPPER RESPIRATORY TRACT INFECTION [None]
  - URINARY TRACT INFECTION [None]
  - VAGINAL CANDIDIASIS [None]
  - VAGINAL DISCHARGE [None]
  - VAGINAL HAEMORRHAGE [None]
  - VAGINITIS BACTERIAL [None]
  - VIRAL PHARYNGITIS [None]
  - VISUAL DISTURBANCE [None]
  - WHITE BLOOD CELL COUNT INCREASED [None]
